FAERS Safety Report 18550549 (Version 1)
Quarter: 2020Q4

REPORT INFORMATION
  Report Type: Other
  Country: IT (occurrence: IT)
  Receive Date: 20201126
  Receipt Date: 20201126
  Transmission Date: 20210114
  Serious: Yes (Hospitalization)
  Sender: FDA-Public Use
  Company Number: IT-MERZ PHARMACEUTICALS GMBH-20-04430

PATIENT
  Sex: Male

DRUGS (1)
  1. ASCLERA [Suspect]
     Active Substance: POLIDOCANOL
     Indication: VARICOCELE
     Route: 042

REACTIONS (10)
  - Flank pain [Unknown]
  - Abdominal distension [Unknown]
  - Portal venous gas [Unknown]
  - Gastrointestinal necrosis [Unknown]
  - Acute abdomen [Unknown]
  - Septic shock [Unknown]
  - Intestinal resection [Unknown]
  - Abdominal pain lower [Unknown]
  - Colostomy [Unknown]
  - Gastrointestinal hypomotility [Unknown]
